FAERS Safety Report 7845544-5 (Version None)
Quarter: 2011Q4

REPORT INFORMATION
  Report Type: 
  Country: None (occurrence: None)
  Receive Date: 20111025
  Receipt Date: 20111021
  Transmission Date: 20120403
  Serious: Yes (Life-Threatening, Hospitalization, Other)
  Sender: FDA-Public Use
  Company Number: CH-GENZYME-CLOF-1001738

PATIENT
  Sex: Male
  Weight: 73 kg

DRUGS (13)
  1. IDARUBICIN HCL [Suspect]
     Dosage: 23.6 MG, CYCLE 2
     Route: 042
  2. CYTARABINE [Suspect]
     Indication: HAEMATOLOGICAL MALIGNANCY
     Dosage: 394 MG, CYCLE 1
     Route: 042
     Dates: start: 20110728, end: 20110803
  3. EVOLTRA [Suspect]
     Dosage: 20 MG, CYCLE 2
     Route: 042
  4. NAVOBAN [Concomitant]
     Indication: PROPHYLAXIS OF NAUSEA AND VOMITING
     Dosage: 5 MG, UNK
     Route: 042
     Dates: start: 20110728, end: 20110804
  5. ZANTAC [Concomitant]
     Indication: PROPHYLAXIS
     Dosage: UNK
     Route: 065
  6. EVOLTRA [Suspect]
     Indication: HAEMATOLOGICAL MALIGNANCY
     Dosage: 20 MG, CYCLE 1
     Route: 042
     Dates: start: 20110729, end: 20110802
  7. ESOMEPRAZOLE SODIUM [Concomitant]
     Indication: PROPHYLAXIS
     Dosage: 40 MG, UNK
     Route: 048
     Dates: start: 20110801, end: 20111002
  8. IDARUBICIN HCL [Suspect]
     Indication: HAEMATOLOGICAL MALIGNANCY
     Dosage: 23.6 MG, CYCLE 1
     Route: 042
     Dates: start: 20110729, end: 20110731
  9. FASTURTEC [Concomitant]
     Indication: HYPERURICAEMIA
     Dosage: 7.5 MG, UNK
     Route: 065
     Dates: start: 20110728, end: 20110728
  10. SOLU-MEDROL [Concomitant]
     Indication: PROPHYLAXIS OF NAUSEA AND VOMITING
     Dosage: 125 MG, UNK
     Route: 042
     Dates: start: 20110728, end: 20110804
  11. ALLOPURINOL [Concomitant]
     Indication: HYPERURICAEMIA
     Dosage: 300 MG, UNK
     Route: 048
     Dates: start: 20110729, end: 20110803
  12. CYTARABINE [Suspect]
     Dosage: 394 MG, CYCLE 2
     Route: 042
  13. MIRTAZAPINE [Concomitant]
     Indication: AFFECTIVE DISORDER
     Dosage: 30 MG, UNK
     Route: 048
     Dates: start: 20110801, end: 20111002

REACTIONS (2)
  - FASCIITIS [None]
  - PNEUMONIA FUNGAL [None]
